FAERS Safety Report 4411332-5 (Version None)
Quarter: 2004Q3

REPORT INFORMATION
  Report Type: 
  Country: None (occurrence: None)
  Receive Date: 20040727
  Receipt Date: 20040625
  Transmission Date: 20050211
  Serious: Yes (Disabling)
  Sender: FDA-Public Use
  Company Number: 805#1#2004-00020

PATIENT
  Age: 79 Year
  Sex: Female

DRUGS (9)
  1. ALPROSTADIL [Suspect]
     Indication: ARTERIAL OCCLUSIVE DISEASE
     Dosage: 1.80 MCG (80MCG 1 IN 1 DAY(S) INTRAVENOUS DRIP
     Route: 041
     Dates: start: 20040524, end: 20040527
  2. ADENOSIN-5-TRIPHOSPHATE-DISODIUM (ADENOSINE TRIOPHOSPHATE, DISODIUM SA [Concomitant]
  3. MECOBALAMIN (MECOBALAMIN) [Concomitant]
  4. PREDNISOLON-ACETATE (PREDNISOLONE) [Concomitant]
  5. GASTER D (FAMOTIDINE) (FAMOTIDINE) [Concomitant]
  6. TEPRENONE (TEPRENONE) [Concomitant]
  7. HYALURONATE SODIUM (HYALURONE SODIUM) [Concomitant]
  8. NIFEDIPINE [Concomitant]
  9. CELIPROLOL HYDROCHLORIDE (CELIPROLOL HYDROCHLORIDE) [Concomitant]

REACTIONS (1)
  - PLATELET COUNT DECREASED [None]
